FAERS Safety Report 21341351 (Version 3)
Quarter: 2023Q2

REPORT INFORMATION
  Report Type: Report from Study
  Country: DE (occurrence: None)
  Receive Date: 20220916
  Receipt Date: 20230529
  Transmission Date: 20230721
  Serious: Yes (Hospitalization)
  Sender: FDA-Public Use
  Company Number: DE-ROCHE-3176344

PATIENT
  Age: 57 Year
  Sex: Female
  Weight: 104 kg

DRUGS (17)
  1. ATEZOLIZUMAB [Suspect]
     Active Substance: ATEZOLIZUMAB
     Indication: Triple negative breast cancer
     Dosage: DATE OF LAST DOSE PRIOR TO SAE: 13 MAY 2022
     Route: 041
     Dates: start: 20220407
  2. PACLITAXEL [Suspect]
     Active Substance: PACLITAXEL
     Indication: Triple negative breast cancer
     Dosage: DATE OF LAST DOSE PRIOR TO SAE: 05 JUL 2022
     Route: 042
     Dates: start: 20220421
  3. CARBOPLATIN [Suspect]
     Active Substance: CARBOPLATIN
     Indication: Triple negative breast cancer
     Dosage: DATE OF LAST DOSE PRIOR TO SAE: 27 JUL 2022
     Route: 042
     Dates: start: 20220421
  4. EPIRUBICIN [Suspect]
     Active Substance: EPIRUBICIN
     Indication: Triple negative breast cancer
     Dosage: DATE OF LAST DOSE PRIOR TO SAE: 03 AUG 2022
     Route: 042
     Dates: start: 20220803
  5. CYCLOPHOSPHAMIDE [Suspect]
     Active Substance: CYCLOPHOSPHAMIDE
     Indication: Triple negative breast cancer
     Dosage: DATE OF LAST DOSE PRIOR TO SAE: 03 AUG 2022
     Route: 042
     Dates: start: 20220803
  6. OMEPRAZOLE [Concomitant]
     Active Substance: OMEPRAZOLE
  7. AMLODIPINE [Concomitant]
     Active Substance: AMLODIPINE BESYLATE
  8. RAMIPRIL [Concomitant]
     Active Substance: RAMIPRIL
  9. LEVOTHYROXINE SODIUM [Concomitant]
     Active Substance: LEVOTHYROXINE SODIUM
  10. METFORMIN HYDROCHLORIDE [Concomitant]
     Active Substance: METFORMIN HYDROCHLORIDE
     Route: 048
  11. OPIPRAMOLI DIHYDROCHLORIDUM [Concomitant]
  12. PREDNISOLONE [Concomitant]
     Active Substance: PREDNISOLONE
     Dates: start: 20220620
  13. INSULIN GLARGINE [Concomitant]
     Active Substance: INSULIN GLARGINE
     Dates: start: 20220718
  14. AMPICILLIN [Concomitant]
     Active Substance: AMPICILLIN
     Dates: start: 20220516, end: 20220520
  15. SULBACTAM [Concomitant]
     Active Substance: SULBACTAM
     Dates: start: 20220516, end: 20220520
  16. ERYTHROCYTES, CONCENTRATED [Concomitant]
     Dates: start: 20220813, end: 20220813
  17. IMODIUM [Concomitant]
     Active Substance: LOPERAMIDE HYDROCHLORIDE
     Dates: start: 20220606, end: 20220619

REACTIONS (1)
  - Febrile neutropenia [Recovered/Resolved]

NARRATIVE: CASE EVENT DATE: 20220810
